FAERS Safety Report 20016390 (Version 1)
Quarter: 2021Q4

REPORT INFORMATION
  Report Type: Spontaneous
  Country: US (occurrence: None)
  Receive Date: 20211103
  Receipt Date: 20211103
  Transmission Date: 20220303
  Serious: Yes (Death)
  Sender: FDA-Public Use
  Company Number: None

PATIENT
  Age: 73 Year
  Sex: Male

DRUGS (8)
  1. TACROLIMUS [Suspect]
     Active Substance: TACROLIMUS
     Indication: Renal transplant
     Dosage: OTHER QUANTITY : 5 CAPSULES;?FREQUENCY : TWICE A DAY;?
     Route: 048
     Dates: start: 20210913
  2. MYCOPHENOLIC ACID [Suspect]
     Active Substance: MYCOPHENOLIC ACID
     Indication: Renal transplant
     Dosage: OTHER QUANTITY : 2 TABLETS;?FREQUENCY : TWICE A DAY;?
     Route: 048
     Dates: start: 20210913
  3. Furosemide 40mg BID [Concomitant]
     Dosage: FREQUENCY : TWICE A DAY;?
  4. Amlodipine 2.5mg D [Concomitant]
     Dosage: FREQUENCY : DAILY;?
  5. Calcitriol 0.25mcg QOD [Concomitant]
     Dosage: FREQUENCY : EVERY OTHER DAY;?
  6. Vit D 1000|U D [Concomitant]
     Dosage: FREQUENCY : DAILY;?
  7. Potassium 20MeQ D [Concomitant]
     Dosage: FREQUENCY : DAILY;?
  8. Carvedilol 6.25mg BID [Concomitant]
     Dosage: FREQUENCY : TWICE A DAY;?

REACTIONS (2)
  - West Nile viral infection [None]
  - Transmission of an infectious agent via transplant [None]

NARRATIVE: CASE EVENT DATE: 20211102
